FAERS Safety Report 21675486 (Version 1)
Quarter: 2022Q4

REPORT INFORMATION
  Report Type: Spontaneous
  Country: IN (occurrence: IN)
  Receive Date: 20221202
  Receipt Date: 20221202
  Transmission Date: 20230113
  Serious: Yes (Hospitalization, Other)
  Sender: FDA-Public Use
  Company Number: IN-INSUD PHARMA-2211IN05064

PATIENT

DRUGS (1)
  1. NUVESSA [Suspect]
     Active Substance: METRONIDAZOLE
     Indication: Enteritis
     Dosage: 400 MG THREE TIMES DAILY
     Route: 048

REACTIONS (8)
  - Cerebellar syndrome [Recovered/Resolved]
  - Cerebellar ataxia [Recovered/Resolved]
  - Dysarthria [Recovered/Resolved]
  - Head titubation [Recovered/Resolved]
  - Ataxia [Recovered/Resolved]
  - Dysmetria [Recovered/Resolved]
  - Gait disturbance [Recovered/Resolved]
  - Nystagmus [Recovered/Resolved]
